FAERS Safety Report 6727481-2 (Version None)
Quarter: 2010Q2

REPORT INFORMATION
  Report Type: 
  Country: None (occurrence: None)
  Receive Date: 20100517
  Receipt Date: 20100511
  Transmission Date: 20101027
  Serious: Yes (Hospitalization)
  Sender: FDA-Public Use
  Company Number: TH-BRISTOL-MYERS SQUIBB COMPANY-14964472

PATIENT
  Age: 20 Year
  Sex: Female

DRUGS (4)
  1. ARIPIPRAZOLE [Suspect]
     Indication: SCHIZOPHRENIA
     Dosage: 29JAN2010-30JAN2010 01FEB2010-08FEB2010:8DAYS DOSE INCREA TO 30MG/D ON 01FEB10,DURATION:2DAYS
     Route: 048
     Dates: start: 20100129, end: 20100208
  2. RISPERDAL [Concomitant]
     Dosage: TABS,ADMINISTRED WITH SUDY DRUG ON 30JAN2010
  3. ATIVAN [Concomitant]
     Dosage: TABS;ADMINISTRED WITH SUDY DRUG ON 30JAN2010
  4. TRIHEXYPHENIDYL HCL [Concomitant]
     Dosage: 1DOSAGEFORM=2 1/2 TABS ADMINISTRED WITH SUDY DRUG ON 30JAN2010

REACTIONS (1)
  - PSYCHOTIC DISORDER [None]
